FAERS Safety Report 6635376-8 (Version None)
Quarter: 2010Q1

REPORT INFORMATION
  Report Type: 
  Country: None (occurrence: None)
  Receive Date: 20100312
  Receipt Date: 20100312
  Transmission Date: 20100710
  Serious: Yes (Death)
  Sender: FDA-Public Use
  Company Number: None

PATIENT
  Age: 49 Year
  Sex: Male
  Weight: 86.1834 kg

DRUGS (1)
  1. LEXAPRO [Suspect]
     Indication: DEPRESSIVE SYMPTOM
     Dosage: UNKNOWN
     Dates: start: 20070115, end: 20070204

REACTIONS (6)
  - AGITATION [None]
  - COMPLETED SUICIDE [None]
  - DRUG PRESCRIBING ERROR [None]
  - FEELING OF DESPAIR [None]
  - INSOMNIA [None]
  - MEDICATION ERROR [None]
